FAERS Safety Report 9520301 (Version 2)
Quarter: 2013Q4

REPORT INFORMATION
  Report Type: Report from Study
  Country: ES (occurrence: ES)
  Receive Date: 20130912
  Receipt Date: 20131108
  Transmission Date: 20140711
  Serious: Yes (Other)
  Sender: FDA-Public Use
  Company Number: ES-VERTEX PHARMACEUTICALS INC-2013-009519

PATIENT
  Age: 57 Year
  Sex: Male

DRUGS (3)
  1. TELAPREVIR [Suspect]
     Indication: CHRONIC HEPATITIS C
     Dosage: UNK
     Route: 048
     Dates: start: 201206
  2. PEGYLATED INTERFERON [Concomitant]
     Indication: CHRONIC HEPATITIS C
     Dosage: UNK
     Dates: start: 201206
  3. RIBAVIRIN [Concomitant]
     Indication: CHRONIC HEPATITIS C
     Dosage: UNK
     Dates: start: 201206

REACTIONS (1)
  - Rash [Recovered/Resolved]
